FAERS Safety Report 5738752-0 (Version None)
Quarter: 2008Q2

REPORT INFORMATION
  Report Type: 
  Country: None (occurrence: None)
  Receive Date: 20080513
  Receipt Date: 20080501
  Transmission Date: 20081010
  Serious: Yes (Hospitalization, Other)
  Sender: FDA-Public Use
  Company Number: 2008-01352

PATIENT
  Age: 57 Year
  Sex: Male
  Weight: 94.8 kg

DRUGS (3)
  1. VELCADE [Suspect]
     Indication: MULTIPLE MYELOMA
     Dosage: 1.3 MG/M2, INTRAVENOUS
     Route: 042
     Dates: start: 20080411, end: 20080411
  2. DECADRON [Concomitant]
  3. LOPRESSOR [Concomitant]

REACTIONS (1)
  - ATRIAL FIBRILLATION [None]
